FAERS Safety Report 10145046 (Version 5)
Quarter: 2014Q2

REPORT INFORMATION
  Report Type: Report from Study
  Country: CA (occurrence: CA)
  Receive Date: 20140501
  Receipt Date: 20140529
  Transmission Date: 20141212
  Serious: Yes (Life-Threatening, Hospitalization)
  Sender: FDA-Public Use
  Company Number: CA-ROCHE-1373102

PATIENT
  Age: 25 Year
  Sex: Female

DRUGS (7)
  1. RITUXAN [Suspect]
     Indication: SYSTEMIC LUPUS ERYTHEMATOSUS
     Dosage: FREQUENCY: DAY 1 + 15
     Route: 042
     Dates: start: 20080117
  2. RITUXAN [Suspect]
     Dosage: FREQUENCY: DAY 1 + 15
     Route: 042
     Dates: start: 20080201
  3. PREDNISONE [Concomitant]
  4. GABAPENTIN [Concomitant]
     Indication: FIBROMYALGIA
  5. CELLCEPT [Concomitant]
  6. LANSOPRAZOLE [Concomitant]
  7. TRAMADOL [Concomitant]
     Indication: PAIN

REACTIONS (8)
  - Suicidal ideation [Not Recovered/Not Resolved]
  - Homicidal ideation [Not Recovered/Not Resolved]
  - Psychotic disorder [Unknown]
  - Systemic lupus erythematosus [Unknown]
  - Infusion related reaction [Unknown]
  - Off label use [Unknown]
  - Catheter site pain [Unknown]
  - Blood pressure increased [Unknown]
